FAERS Safety Report 24887910 (Version 1)
Quarter: 2025Q1

REPORT INFORMATION
  Report Type: Spontaneous
  Country: US (occurrence: US)
  Receive Date: 20250127
  Receipt Date: 20250127
  Transmission Date: 20250408
  Serious: Yes (Other)
  Sender: RISING PHARMACEUTICALS
  Company Number: US-RISINGPHARMA-US-2025RISLIT00033

PATIENT
  Age: 68 Year
  Sex: Female

DRUGS (1)
  1. ERLOTINIB HYDROCHLORIDE [Suspect]
     Active Substance: ERLOTINIB HYDROCHLORIDE
     Indication: Non-small cell lung cancer
     Route: 048

REACTIONS (6)
  - Scleroderma-like reaction [Recovering/Resolving]
  - Oral disorder [Recovering/Resolving]
  - Rash pustular [Recovering/Resolving]
  - Xerosis [Recovering/Resolving]
  - Paronychia [Recovering/Resolving]
  - Skin fissures [Recovering/Resolving]
